FAERS Safety Report 8962290 (Version 3)
Quarter: 2013Q1

REPORT INFORMATION
  Report Type: Spontaneous
  Country: DE (occurrence: DE)
  Receive Date: 20121212
  Receipt Date: 20130315
  Transmission Date: 20140127
  Serious: Yes (Other)
  Sender: FDA-Public Use
  Company Number: DE-TEVA-373755GER

PATIENT
  Sex: Male

DRUGS (5)
  1. SERTRALIN [Suspect]
     Indication: DEPRESSION
     Dosage: 50 MILLIGRAM DAILY;
     Route: 048
     Dates: start: 20120725
  2. SERTRALIN [Interacting]
     Dosage: 100 MILLIGRAM DAILY;
     Route: 048
     Dates: start: 2012
  3. SETRALIE [Interacting]
     Dosage: 150 MILLIGRAM DAILY;
     Route: 048
     Dates: start: 20120725
  4. OLANZAPINE [Interacting]
     Indication: DEPRESSION
     Dosage: 10 MILLIGRAM DAILY;
     Dates: start: 2010
  5. ERGENYL CHRONO [Concomitant]
     Dosage: 1000 MILLIGRAM DAILY;
     Route: 048

REACTIONS (2)
  - Blood triglycerides increased [Unknown]
  - Drug interaction [Unknown]
